FAERS Safety Report 14780743 (Version 1)
Quarter: 2018Q2

REPORT INFORMATION
  Report Type: Report from Study
  Country: DE (occurrence: DE)
  Receive Date: 20180419
  Receipt Date: 20180419
  Transmission Date: 20180711
  Serious: Yes (Other)
  Sender: FDA-Public Use
  Company Number: DE-TEVA-2018-DE-883090

PATIENT
  Age: 52 Year
  Sex: Female

DRUGS (1)
  1. COPAXONE [Suspect]
     Active Substance: GLATIRAMER ACETATE
     Indication: MULTIPLE SCLEROSIS
     Dates: start: 20160420, end: 20171024

REACTIONS (5)
  - Injection site necrosis [Recovered/Resolved with Sequelae]
  - Injection site scar [Not Recovered/Not Resolved]
  - Injection site pain [Recovered/Resolved]
  - Injection site discolouration [Recovering/Resolving]
  - Injection site swelling [Recovered/Resolved]

NARRATIVE: CASE EVENT DATE: 20171023
